FAERS Safety Report 15509055 (Version 1)
Quarter: 2018Q4

REPORT INFORMATION
  Report Type: Spontaneous
  Country: FR (occurrence: FR)
  Receive Date: 20181016
  Receipt Date: 20181016
  Transmission Date: 20190205
  Serious: Yes (Death)
  Sender: FDA-Public Use
  Company Number: FR-009507513-1810FRA005165

PATIENT
  Age: 60 Year
  Sex: Female
  Weight: 98 kg

DRUGS (7)
  1. MESNA. [Concomitant]
     Active Substance: MESNA
  2. EMEND [Suspect]
     Active Substance: APREPITANT
     Dosage: 125 MG, QD
     Route: 048
     Dates: start: 20180806, end: 20180807
  3. SODIUM CHLORIDE. [Concomitant]
     Active Substance: SODIUM CHLORIDE
  4. METHYLPREDNISOLONE. [Concomitant]
     Active Substance: METHYLPREDNISOLONE
  5. ONDANSETRON [Concomitant]
     Active Substance: ONDANSETRON
  6. DOXORUBICIN [Suspect]
     Active Substance: DOXORUBICIN
     Indication: SARCOMA
     Dosage: 40 MG, QD
     Route: 042
     Dates: start: 20180806, end: 20180807
  7. HOLOXAN [Interacting]
     Active Substance: IFOSFAMIDE
     Indication: SARCOMA
     Dosage: 5 G, UNK
     Route: 042
     Dates: start: 20180806, end: 20180807

REACTIONS (1)
  - Encephalopathy [Fatal]

NARRATIVE: CASE EVENT DATE: 20180807
